FAERS Safety Report 15181004 (Version 1)
Quarter: 2018Q3

REPORT INFORMATION
  Report Type: Report from Study
  Country: FR (occurrence: FR)
  Receive Date: 20180723
  Receipt Date: 20180723
  Transmission Date: 20181010
  Serious: Yes (Life-Threatening, Hospitalization, Other)
  Sender: FDA-Public Use
  Company Number: FR-BAYER-2018-137247

PATIENT
  Age: 84 Year
  Sex: Female

DRUGS (7)
  1. LEVOTHYROX [Concomitant]
     Active Substance: LEVOTHYROXINE
     Dosage: 87.5 ?G, QD
  2. AVLOCARDYL [Concomitant]
     Active Substance: PROPRANOLOL HYDROCHLORIDE
     Dosage: 0.5 DF, BID
  3. CALCIPRAT [Concomitant]
     Dosage: 100/800, 1 DF QD
  4. JANUVIA [Concomitant]
     Active Substance: SITAGLIPTIN PHOSPHATE
     Dosage: DAILY DOSE 2 DF
  5. RADIUM?223 DICHLORIDE [Suspect]
     Active Substance: RADIUM RA-223 DICHLORIDE
     Indication: FOLLICULAR THYROID CANCER
     Dosage: UNK
     Dates: start: 201606, end: 201611
  6. MACROGOL [Concomitant]
     Active Substance: POLYETHYLENE GLYCOLS
     Dosage: 1 DF, UNK
  7. GLUCOSAMINE COMPLEX [Concomitant]
     Active Substance: GLUCOSAMINE\GLUCOSAMINE SULFATE
     Dosage: 3 DF, QD

REACTIONS (1)
  - Acute promyelocytic leukaemia [Not Recovered/Not Resolved]

NARRATIVE: CASE EVENT DATE: 20180626
